FAERS Safety Report 16878102 (Version 3)
Quarter: 2020Q2

REPORT INFORMATION
  Report Type: Report from Study
  Country: BE (occurrence: BE)
  Receive Date: 20191002
  Receipt Date: 20200511
  Transmission Date: 20200713
  Serious: Yes (Death, Hospitalization, Other)
  Sender: FDA-Public Use
  Company Number: BE-JNJFOC-20190909613

PATIENT
  Sex: Male

DRUGS (17)
  1. RIVAROXABAN [Suspect]
     Active Substance: RIVAROXABAN
     Indication: CORONARY ARTERY BYPASS
  2. ATORVASTATIN [Concomitant]
     Active Substance: ATORVASTATIN
     Dosage: 80 MG, QD
  3. RIVAROXABAN [Suspect]
     Active Substance: RIVAROXABAN
     Indication: CORONARY ARTERY DISEASE
     Dosage: 5 MG QD
     Route: 048
     Dates: start: 20190711, end: 20190830
  4. RIVAROXABAN [Suspect]
     Active Substance: RIVAROXABAN
     Indication: ISCHAEMIC STROKE
  5. AMLODIPINE [Concomitant]
     Active Substance: AMLODIPINE BESYLATE
     Dosage: 1 DF, QD
  6. SPIRONOLACTONE. [Concomitant]
     Active Substance: SPIRONOLACTONE
  7. ACETYLSALICYLIC ACID [Concomitant]
     Active Substance: ASPIRIN
     Dosage: 80 MG QD
  8. BIPRESSIL [Concomitant]
     Active Substance: BISOPROLOL FUMARATE\PERINDOPRIL ARGININE
     Dosage: UNK
  9. METRONIDAZOL ND [Concomitant]
     Dosage: 1500 MG
     Dates: start: 20190902, end: 20190902
  10. AMLOR [Concomitant]
     Active Substance: AMLODIPINE BESYLATE
     Dosage: 5 MG QD
     Dates: start: 20190902
  11. LIPITOR [Concomitant]
     Active Substance: ATORVASTATIN CALCIUM
     Dosage: 80 MG, QD
  12. TAZOBACTAM [Concomitant]
     Active Substance: TAZOBACTAM
     Dosage: UNK
     Dates: start: 20190903, end: 20190903
  13. PARACETAMOL [Concomitant]
     Active Substance: ACETAMINOPHEN
  14. HYDROCORTISONE. [Concomitant]
     Active Substance: HYDROCORTISONE
  15. CEFAZOLINE [CEFAZOLIN] [Concomitant]
     Active Substance: CEFAZOLIN
     Dosage: 400 MG, QD
     Dates: start: 20190902, end: 20190903
  16. BISPROLOL COMP [Concomitant]
     Active Substance: BISOPROLOL FUMARATE\HYDROCHLOROTHIAZIDE
     Dosage: 5 MG, QD
  17. AMLODIPIN CARDIO [Concomitant]
     Dosage: 5 MG, QD

REACTIONS (14)
  - Hypovolaemic shock [Fatal]
  - Coma [Unknown]
  - Aortic aneurysm repair [Unknown]
  - Hyperkalaemia [Unknown]
  - Death [Fatal]
  - Multiple organ dysfunction syndrome [Unknown]
  - Intestinal ischaemia [Fatal]
  - Aortic aneurysm [Fatal]
  - Hepatic failure [Fatal]
  - Lactic acidosis [Unknown]
  - Small intestinal haemorrhage [Fatal]
  - Intestinal ischaemia [Unknown]
  - Aortic aneurysm rupture [Fatal]
  - Hypoglycaemia [Unknown]

NARRATIVE: CASE EVENT DATE: 20190901
